FAERS Safety Report 12485544 (Version 1)
Quarter: 2016Q2

REPORT INFORMATION
  Report Type: Spontaneous
  Country: US (occurrence: US)
  Receive Date: 20160621
  Receipt Date: 20160621
  Transmission Date: 20160815
  Serious: No
  Sender: FDA-Public Use
  Company Number: US-MYLANLABS-2016M1008189

PATIENT
  Sex: Female

DRUGS (2)
  1. DOXEPIN HYDROCHLORIDE CAPSULES, USP [Suspect]
     Active Substance: DOXEPIN HYDROCHLORIDE
     Dosage: 50 MG, HS
     Route: 048
     Dates: start: 2015
  2. THYROID THERAPY [Concomitant]
     Active Substance: UNSPECIFIED INGREDIENT
     Indication: THYROID THERAPY
     Dosage: UNK

REACTIONS (3)
  - Reaction to drug excipients [Not Recovered/Not Resolved]
  - Gastrointestinal pain [Not Recovered/Not Resolved]
  - Condition aggravated [Not Recovered/Not Resolved]
